FAERS Safety Report 6315655-4 (Version None)
Quarter: 2009Q3

REPORT INFORMATION
  Report Type: 
  Country: None (occurrence: None)
  Receive Date: 20090819
  Receipt Date: 20090814
  Transmission Date: 20100115
  Serious: Yes (Other)
  Sender: FDA-Public Use
  Company Number: US-JNJCH-2009022148

PATIENT
  Age: 62 Year
  Sex: Female
  Weight: 82.6 kg

DRUGS (2)
  1. ZYRTEC [Suspect]
     Indication: HYPERSENSITIVITY
     Dosage: TEXT:1 TABLET ONCE DAILY
     Route: 048
     Dates: start: 20090809, end: 20090811
  2. LEVOTHYROXINE [Concomitant]
     Indication: THYROID DISORDER
     Dosage: TEXT:UNSPECIFIED
     Route: 065

REACTIONS (1)
  - EPISTAXIS [None]
